FAERS Safety Report 10903341 (Version 3)
Quarter: 2015Q2

REPORT INFORMATION
  Report Type: Spontaneous
  Country: GB (occurrence: GB)
  Receive Date: 20150311
  Receipt Date: 20150415
  Transmission Date: 20150821
  Serious: Yes (Life-Threatening, Hospitalization, Other)
  Sender: FDA-Public Use
  Company Number: GB-ACCORD-029143

PATIENT
  Age: 84 Year
  Sex: Female
  Weight: 61 kg

DRUGS (10)
  1. RAMIPRIL. [Suspect]
     Active Substance: RAMIPRIL
     Indication: CARDIAC FAILURE
     Dosage: 1.25 MG FROM 05-FEB-15, INCREASED TO 2.5 MG FROM UNKNOWN DATE, INCREASED TO 5 MG FROM UNKNOWN DATE.
     Route: 048
     Dates: end: 20150218
  2. FUROSEMIDE. [Concomitant]
     Active Substance: FUROSEMIDE
  3. GLICLAZIDE [Concomitant]
     Active Substance: GLICLAZIDE
  4. DIGOXIN. [Suspect]
     Active Substance: DIGOXIN
     Indication: ATRIAL FIBRILLATION
     Dosage: DOSE INCREASED FROM 125 ?G (DURATION: 15 DAYS) TO 187.5 ?G.
     Route: 048
     Dates: start: 20150202, end: 20150217
  5. ALLOPURINOL. [Concomitant]
     Active Substance: ALLOPURINOL
  6. CARVEDILOL/CARVEDILOL HYDROCHLODRIDE [Concomitant]
  7. AMITRIPTYLINE [Concomitant]
     Active Substance: AMITRIPTYLINE
  8. LEVOTHYROXINE [Concomitant]
     Active Substance: LEVOTHYROXINE
  9. ATORVASTATIN [Concomitant]
     Active Substance: ATORVASTATIN
  10. DOXAZOSIN [Concomitant]
     Active Substance: DOXAZOSIN\DOXAZOSIN MESYLATE

REACTIONS (2)
  - Bradycardia [Recovered/Resolved]
  - Renal impairment [Recovered/Resolved]

NARRATIVE: CASE EVENT DATE: 20150217
